FAERS Safety Report 5633061-2 (Version None)
Quarter: 2008Q1

REPORT INFORMATION
  Report Type: 
  Country: None (occurrence: None)
  Receive Date: 20080214
  Receipt Date: 20080213
  Transmission Date: 20080703
  Serious: Yes (Other)
  Sender: FDA-Public Use
  Company Number: 2007SP022896

PATIENT
  Sex: Male

DRUGS (2)
  1. PEG-INTERON (PEGINTERFERON ALFA-2B) (PEGINTERFERON ALFA-2B) [Suspect]
     Indication: HEPATITIS C
     Dosage: SC
     Route: 058
     Dates: end: 20061201
  2. REBETOL [Suspect]
     Indication: HEPATITIS C
     Dosage: PO
     Route: 048
     Dates: end: 20061201

REACTIONS (1)
  - VITREOUS FLOATERS [None]
